FAERS Safety Report 16391302 (Version 1)
Quarter: 2019Q2

REPORT INFORMATION
  Report Type: Spontaneous
  Country: GR (occurrence: GR)
  Receive Date: 20190604
  Receipt Date: 20190604
  Transmission Date: 20190711
  Serious: Yes (Hospitalization, Congenital Anomaly)
  Sender: FDA-Public Use
  Company Number: PHHY2019GR126609

PATIENT
  Age: 70 Year
  Sex: Female

DRUGS (1)
  1. OLMESARTAN MEDOXOMIL+HYDROCHLOROTHIAZIDE [Suspect]
     Active Substance: HYDROCHLOROTHIAZIDE\OLMESARTAN MEDOXOMIL
     Indication: HYPERTENSION
     Dosage: 32.5 MG, BID
     Route: 065

REACTIONS (14)
  - Troponin I increased [Unknown]
  - Mitral valve incompetence [Unknown]
  - Acute coronary syndrome [Unknown]
  - Tricuspid valve incompetence [Unknown]
  - Arteriosclerosis [Unknown]
  - Congenital coronary artery malformation [Unknown]
  - Dyspnoea [Unknown]
  - Pericardial effusion [Unknown]
  - Left ventricular hypertrophy [Unknown]
  - Stenosis [Unknown]
  - Chest pain [Unknown]
  - Diaphragmatic disorder [Unknown]
  - Blood pressure increased [Unknown]
  - Breath sounds abnormal [Unknown]
